FAERS Safety Report 5717425-4 (Version None)
Quarter: 2008Q2

REPORT INFORMATION
  Report Type: 
  Country: None (occurrence: None)
  Receive Date: 20080424
  Receipt Date: 20080424
  Transmission Date: 20081010
  Serious: Yes (Hospitalization)
  Sender: FDA-Public Use
  Company Number: None

PATIENT
  Age: 50 Year
  Sex: Female
  Weight: 117 kg

DRUGS (1)
  1. ETHINYL ESTRADIOL AND NORETHINDRONE [Suspect]
     Indication: CONTRACEPTION
     Dates: end: 20080302

REACTIONS (4)
  - ANAEMIA [None]
  - DRUG EXPOSURE DURING PREGNANCY [None]
  - PREGNANCY [None]
  - PULMONARY EMBOLISM [None]
